FAERS Safety Report 9818206 (Version 1)
Quarter: 2014Q1

REPORT INFORMATION
  Report Type: Report from Study
  Country: TN (occurrence: TN)
  Receive Date: 20140115
  Receipt Date: 20140115
  Transmission Date: 20141002
  Serious: Yes (Death)
  Sender: FDA-Public Use
  Company Number: TN-ASTELLAS-2014EU000194

PATIENT
  Age: 39 Year
  Sex: Male

DRUGS (3)
  1. TACROLIMUS SYSTEMIC [Suspect]
     Indication: IMMUNOSUPPRESSION
     Dosage: 7 MG, UNKNOWN/D
     Route: 065
  2. SOLUMEDROL [Suspect]
     Indication: IMMUNOSUPPRESSION
     Dosage: 50 MG, UNKNOWN/D
     Route: 065
  3. PREDNISONE [Suspect]
     Indication: IMMUNOSUPPRESSION
     Dosage: 3 DF, UNKNOWN/D
     Route: 065

REACTIONS (3)
  - Pneumocystis jirovecii infection [Fatal]
  - Respiratory distress [Fatal]
  - Septic shock [Fatal]
